FAERS Safety Report 7718117-2 (Version None)
Quarter: 2011Q3

REPORT INFORMATION
  Report Type: 
  Country: None (occurrence: None)
  Receive Date: 20110817
  Receipt Date: 20100708
  Transmission Date: 20111222
  Serious: Yes (Other)
  Sender: FDA-Public Use
  Company Number: 20109002

PATIENT
  Sex: Female

DRUGS (1)
  1. LIORESAL [Suspect]
     Indication: MUSCLE SPASTICITY
     Dosage: 185 MCG, DAILY, INTRATHECAL
     Route: 037

REACTIONS (5)
  - MALAISE [None]
  - HYPERTONIA [None]
  - FATIGUE [None]
  - PYREXIA [None]
  - INSOMNIA [None]
